FAERS Safety Report 8759473 (Version 4)
Quarter: 2013Q2

REPORT INFORMATION
  Report Type: Report from Study
  Country: JP (occurrence: JP)
  Receive Date: 20120829
  Receipt Date: 20130527
  Transmission Date: 20140414
  Serious: Yes (Hospitalization, Other)
  Sender: FDA-Public Use
  Company Number: JP-MERCK-2012SP018320

PATIENT
  Age: 53 Year
  Sex: Female
  Weight: 64 kg

DRUGS (13)
  1. PEGINTRON [Suspect]
     Indication: CHRONIC HEPATITIS C
     Dosage: 1.3 MICROGRAM PER KILOGRAM, QW
     Route: 058
     Dates: start: 20111221, end: 20120307
  2. REBETOL [Suspect]
     Indication: CHRONIC HEPATITIS C
     Dosage: 400 MG, QD
     Route: 048
     Dates: start: 20111221, end: 20120314
  3. TELAVIC [Suspect]
     Indication: CHRONIC HEPATITIS C
     Dosage: 1500 MG, QD
     Route: 048
     Dates: start: 20111221, end: 20120313
  4. VOLTAREN [Concomitant]
     Indication: PROPHYLAXIS
     Dosage: UNK UNK, PRN
     Route: 054
     Dates: start: 20111221, end: 20120203
  5. PRIMPERAN [Concomitant]
     Indication: PROPHYLAXIS
     Dosage: 5 MG, QD
     Route: 048
     Dates: start: 20111222
  6. RINDERON VG [Concomitant]
     Indication: ECZEMA
     Dosage: UNK UNK, PRN
     Route: 061
     Dates: end: 20120314
  7. RINDERON VG [Concomitant]
     Indication: RASH
  8. MEILAX [Concomitant]
     Indication: ANXIETY DISORDER
     Dosage: 1 MG, QD
     Route: 048
     Dates: end: 20120314
  9. ZOLOFT [Concomitant]
     Indication: ANXIETY DISORDER
     Dosage: 50 MG, QD
     Route: 048
  10. MAGLAX [Concomitant]
     Indication: PROPHYLAXIS
     Dosage: 1500 MG, QD
     Route: 048
  11. SELBEX [Concomitant]
     Indication: PROPHYLAXIS
     Dosage: 150 MG, QD
     Route: 048
  12. LOXONIN [Concomitant]
     Indication: PROPHYLAXIS
     Dosage: UNK, PRN
     Route: 048
  13. BENZALIN [Concomitant]
     Indication: ANXIETY DISORDER
     Dosage: 2.5 MG, QD
     Route: 048

REACTIONS (3)
  - Disseminated intravascular coagulation [Recovering/Resolving]
  - Erythema multiforme [Recovering/Resolving]
  - Pyrexia [Recovering/Resolving]
